FAERS Safety Report 14142579 (Version 1)
Quarter: 2017Q4

REPORT INFORMATION
  Report Type: Spontaneous
  Country: US (occurrence: US)
  Receive Date: 20171030
  Receipt Date: 20171030
  Transmission Date: 20180321
  Serious: Yes (Hospitalization)
  Sender: FDA-Public Use
  Company Number: US-MYLANLABS-2017M1067427

PATIENT
  Age: 39 Year
  Sex: Female

DRUGS (4)
  1. VILAZODONE [Suspect]
     Active Substance: VILAZODONE
     Indication: PRODUCT USED FOR UNKNOWN INDICATION
     Dosage: 20 TABLETS OF VILAZODONE 40MG
     Route: 048
  2. DIPHENHYDRAMINE. [Concomitant]
     Active Substance: DIPHENHYDRAMINE
     Indication: PRODUCT USED FOR UNKNOWN INDICATION
     Route: 065
  3. TRAMADOL. [Suspect]
     Active Substance: TRAMADOL
     Indication: PRODUCT USED FOR UNKNOWN INDICATION
     Route: 048
  4. IBUPROFEN. [Suspect]
     Active Substance: IBUPROFEN
     Indication: PRODUCT USED FOR UNKNOWN INDICATION
     Dosage: FOUR TABLETS OF IBUPROFEN 200MG
     Route: 048

REACTIONS (3)
  - Toxicity to various agents [Recovered/Resolved]
  - Serotonin syndrome [Recovered/Resolved]
  - Overdose [Recovered/Resolved]
